FAERS Safety Report 24935543 (Version 3)
Quarter: 2025Q2

REPORT INFORMATION
  Report Type: Report from Study
  Country: BR (occurrence: BR)
  Receive Date: 20250206
  Receipt Date: 20250604
  Transmission Date: 20250717
  Serious: Yes (Other)
  Sender: UCB
  Company Number: BR-UCBSA-2024065966

PATIENT
  Age: 68 Year
  Sex: Male
  Weight: 74 kg

DRUGS (4)
  1. BIMEKIZUMAB [Suspect]
     Active Substance: BIMEKIZUMAB
     Indication: Psoriasis
     Dosage: 320 MILLIGRAM, EV 8 WEEKS
     Route: 058
     Dates: start: 20240910
  2. DICLOFENAC SODIUM\TRAMADOL HYDROCHLORIDE [Concomitant]
     Active Substance: DICLOFENAC SODIUM\TRAMADOL HYDROCHLORIDE
     Indication: Pain
  3. CODEINE [Concomitant]
     Active Substance: CODEINE
     Indication: Pain
  4. MORPHINE [Concomitant]
     Active Substance: MORPHINE
     Indication: Pain

REACTIONS (5)
  - Oesophagitis bacterial [Recovering/Resolving]
  - Application site pain [Not Recovered/Not Resolved]
  - Oral candidiasis [Recovered/Resolved]
  - Oropharyngeal pain [Unknown]
  - Influenza [Recovering/Resolving]

NARRATIVE: CASE EVENT DATE: 20240910
